FAERS Safety Report 24819322 (Version 1)
Quarter: 2025Q1

REPORT INFORMATION
  Report Type: Spontaneous
  Country: CN (occurrence: CN)
  Receive Date: 20250108
  Receipt Date: 20250108
  Transmission Date: 20250408
  Serious: Yes (Hospitalization, Other)
  Sender: SANOFI AVENTIS
  Company Number: CN-DialogSolutions-SAAVPROD-PI727993-C1

PATIENT
  Age: 19 Year
  Sex: Male

DRUGS (1)
  1. DUPILUMAB [Suspect]
     Active Substance: DUPILUMAB
     Indication: Dermatitis atopic

REACTIONS (9)
  - Psoriasis [Recovering/Resolving]
  - Macule [Recovering/Resolving]
  - Papule [Recovering/Resolving]
  - Skin lesion [Recovering/Resolving]
  - Hyperkeratosis [Recovering/Resolving]
  - Folliculitis [Recovering/Resolving]
  - Ichthyosis [Recovering/Resolving]
  - Skin hyperplasia [Recovering/Resolving]
  - Cytokine storm [Recovering/Resolving]
